FAERS Safety Report 12831381 (Version 2)
Quarter: 2016Q4

REPORT INFORMATION
  Report Type: Spontaneous
  Country: US (occurrence: US)
  Receive Date: 20161008
  Receipt Date: 20161108
  Transmission Date: 20170207
  Serious: Yes (Other)
  Sender: FDA-Public Use
  Company Number: US-AMGEN-USASP2016135422

PATIENT

DRUGS (2)
  1. XGEVA [Suspect]
     Active Substance: DENOSUMAB
     Indication: METASTASES TO BONE
  2. XGEVA [Suspect]
     Active Substance: DENOSUMAB
     Indication: INFLAMMATORY CARCINOMA OF BREAST STAGE IV
     Dosage: UNK
     Route: 065

REACTIONS (7)
  - Wrist fracture [Unknown]
  - Abdominal pain [Unknown]
  - Vomiting [Unknown]
  - Impaired quality of life [Unknown]
  - Malignant neoplasm progression [Unknown]
  - Triple negative breast cancer [Recovering/Resolving]
  - Balance disorder [Unknown]

NARRATIVE: CASE EVENT DATE: 2015
